FAERS Safety Report 21439938 (Version 1)
Quarter: 2022Q4

REPORT INFORMATION
  Report Type: Spontaneous
  Country: DE (occurrence: DE)
  Receive Date: 20221011
  Receipt Date: 20221011
  Transmission Date: 20230112
  Serious: Yes (Hospitalization)
  Sender: FDA-Public Use
  Company Number: None

PATIENT
  Age: 74 Year
  Sex: Female

DRUGS (7)
  1. VENLAFAXINE HYDROCHLORIDE [Suspect]
     Active Substance: VENLAFAXINE HYDROCHLORIDE
     Dosage: 75 MG, 0-1-0-0, RETARD-KAPSELN
  2. VENLAFAXINE HYDROCHLORIDE [Interacting]
     Active Substance: VENLAFAXINE HYDROCHLORIDE
     Dosage: 150 MG, 1-0-0-0, RETARD-KAPSELN
  3. CRIZOTINIB [Interacting]
     Active Substance: CRIZOTINIB
     Dosage: CRIZOTINIB 200 MG, 1-0-1-0, CAPSULE
  4. OPIPRAMOL [Interacting]
     Active Substance: OPIPRAMOL
     Dosage: OPIPRAMOL 50 MG, COATED TABLET
  5. RIVAROXABAN [Concomitant]
     Active Substance: RIVAROXABAN
     Dosage: 20 MG, 1-0-0-0, TABLETTEN
  6. SIMVASTATIN [Concomitant]
     Active Substance: SIMVASTATIN
     Dosage: 20 MG, 1-0-0-0, TABLETTEN
  7. METOPROLOL [Interacting]
     Active Substance: METOPROLOL
     Dosage: METOPROLOL 23.75 MG, 0.5-0-0.5-0, PROLONGED-RELEASE TABLET

REACTIONS (7)
  - Electrocardiogram QT prolonged [Unknown]
  - Product prescribing error [Unknown]
  - General physical health deterioration [Unknown]
  - Labelled drug-drug interaction medication error [Unknown]
  - Product monitoring error [Unknown]
  - Atrial fibrillation [Unknown]
  - Tachycardia [Unknown]
